FAERS Safety Report 17029954 (Version 5)
Quarter: 2020Q4

REPORT INFORMATION
  Report Type: Report from Study
  Country: US (occurrence: US)
  Receive Date: 20191114
  Receipt Date: 20201030
  Transmission Date: 20210113
  Serious: No
  Sender: FDA-Public Use
  Company Number: NVSC2019US034894

PATIENT
  Sex: Male

DRUGS (1)
  1. GILENYA [Suspect]
     Active Substance: FINGOLIMOD HYDROCHLORIDE
     Indication: MULTIPLE SCLEROSIS
     Dosage: 0.5 MG, QD
     Route: 048
     Dates: start: 20190831

REACTIONS (6)
  - Headache [Unknown]
  - Limb discomfort [Recovered/Resolved]
  - Eye pain [Recovered/Resolved]
  - Hypoaesthesia [Unknown]
  - Migraine [Unknown]
  - Headache [Recovered/Resolved]
